FAERS Safety Report 14166345 (Version 1)
Quarter: 2017Q4

REPORT INFORMATION
  Report Type: Spontaneous
  Country: US (occurrence: US)
  Receive Date: 20171106
  Receipt Date: 20171106
  Transmission Date: 20180321
  Serious: Yes (Hospitalization)
  Sender: FDA-Public Use
  Company Number: None

PATIENT
  Age: 52 Year
  Sex: Female

DRUGS (4)
  1. ADVAIR DISKUS [Concomitant]
     Active Substance: FLUTICASONE PROPIONATE\SALMETEROL XINAFOATE
  2. MORPHINE [Suspect]
     Active Substance: MORPHINE
     Route: 042
     Dates: start: 20171105, end: 20171105
  3. LOSARTAN. [Concomitant]
     Active Substance: LOSARTAN
  4. ONDANSETRON [Concomitant]
     Active Substance: ONDANSETRON

REACTIONS (1)
  - Pruritus [None]

NARRATIVE: CASE EVENT DATE: 20171105
